FAERS Safety Report 6171405-6 (Version None)
Quarter: 2009Q2

REPORT INFORMATION
  Report Type: 
  Country: None (occurrence: None)
  Receive Date: 20090429
  Receipt Date: 20090417
  Transmission Date: 20091009
  Serious: Yes (Hospitalization)
  Sender: FDA-Public Use
  Company Number: US-PFIZER INC-2007097081

PATIENT
  Sex: Female
  Weight: 66.213 kg

DRUGS (11)
  1. BLINDED *PLACEBO [Suspect]
     Indication: TRANSITIONAL CELL CARCINOMA
     Dosage: 50 MG DAILY
     Route: 048
     Dates: start: 20071107, end: 20071116
  2. BLINDED SUNITINIB MALATE [Suspect]
     Indication: TRANSITIONAL CELL CARCINOMA
     Dosage: 50 MG DAILY
     Route: 048
     Dates: start: 20071107, end: 20071116
  3. COMPAZINE [Concomitant]
     Dates: start: 20071001
  4. RANITIDINE [Concomitant]
     Dates: start: 20071107
  5. DARVOCET [Concomitant]
     Dates: start: 20071001
  6. LOMOTIL [Concomitant]
     Dates: start: 20071001
  7. ATIVAN [Concomitant]
     Dates: start: 20071024
  8. PROTONIX [Concomitant]
     Dates: start: 20070413, end: 20071106
  9. PROZAC [Concomitant]
     Dates: start: 20071001
  10. TYLENOL [Concomitant]
     Dates: start: 20060302
  11. CENTRUM [Concomitant]
     Dates: start: 20060302

REACTIONS (4)
  - HYPOKALAEMIA [None]
  - HYPOVOLAEMIA [None]
  - SMALL INTESTINAL OBSTRUCTION [None]
  - URINARY TRACT INFECTION [None]
